FAERS Safety Report 8917427 (Version 1)
Quarter: 2012Q4

REPORT INFORMATION
  Report Type: 
  Country: US (occurrence: US)
  Receive Date: 20121120
  Receipt Date: 20121120
  Transmission Date: 20130627
  Serious: No
  Sender: FDA-Public Use
  Company Number: US-PFIZER INC-2012285757

PATIENT
  Age: 58 Year
  Sex: Male

DRUGS (1)
  1. AXITINIB [Suspect]
     Indication: RENAL CELL CARCINOMA
     Dosage: UNK
     Dates: start: 201208

REACTIONS (1)
  - Fatigue [Unknown]
